FAERS Safety Report 4428480-6 (Version None)
Quarter: 2004Q3

REPORT INFORMATION
  Report Type: 
  Country: None (occurrence: None)
  Receive Date: 20040813
  Receipt Date: 20040809
  Transmission Date: 20050211
  Serious: No
  Sender: FDA-Public Use
  Company Number: 2004SE04507

PATIENT
  Age: 86 Year
  Sex: 0

DRUGS (2)
  1. AMIAS [Suspect]
     Dosage: 8 MG DAILY PO
     Route: 048
  2. FRUSEMIDE [Suspect]
     Dosage: 40 MG DAILY PO
     Route: 048

REACTIONS (4)
  - BLOOD CREATININE INCREASED [None]
  - BLOOD UREA INCREASED [None]
  - DEHYDRATION [None]
  - RENAL FAILURE [None]
